FAERS Safety Report 11146560 (Version 1)
Quarter: 2015Q2

REPORT INFORMATION
  Report Type: Spontaneous
  Country: US (occurrence: US)
  Receive Date: 20150528
  Receipt Date: 20150528
  Transmission Date: 20150821
  Serious: Yes (Hospitalization)
  Sender: FDA-Public Use
  Company Number: US-JNJFOC-20150518789

PATIENT
  Age: 80 Year
  Sex: Female

DRUGS (6)
  1. FOLIC ACID. [Concomitant]
     Active Substance: FOLIC ACID
  2. IMBRUVICA [Suspect]
     Active Substance: IBRUTINIB
     Indication: CHRONIC LYMPHOCYTIC LEUKAEMIA
     Route: 048
     Dates: start: 20150321, end: 20150515
  3. ZOLPIDEM [Concomitant]
     Active Substance: ZOLPIDEM\ZOLPIDEM TARTRATE
  4. METHOTREXATE [Concomitant]
     Active Substance: METHOTREXATE
  5. ASPIRIN. [Concomitant]
     Active Substance: ASPIRIN
  6. ETODOLAC. [Concomitant]
     Active Substance: ETODOLAC

REACTIONS (8)
  - Constipation [Unknown]
  - Anaemia [Unknown]
  - Fall [Unknown]
  - Drug intolerance [Unknown]
  - Malaise [Unknown]
  - Haematochezia [Unknown]
  - Dizziness [Unknown]
  - Diarrhoea [Not Recovered/Not Resolved]

NARRATIVE: CASE EVENT DATE: 2015
